FAERS Safety Report 19241558 (Version 2)
Quarter: 2021Q2

REPORT INFORMATION
  Report Type: Report from Study
  Country: US (occurrence: US)
  Receive Date: 20210511
  Receipt Date: 20210610
  Transmission Date: 20210717
  Serious: Yes (Other)
  Sender: FDA-Public Use
  Company Number: US-ROCHE-2826472

PATIENT
  Age: 75 Year
  Sex: Female
  Weight: 63.6 kg

DRUGS (4)
  1. OBINUTUZUMAB. [Suspect]
     Active Substance: OBINUTUZUMAB
     Indication: CHRONIC LYMPHOCYTIC LEUKAEMIA
     Dosage: 100 MG IV ON C1D1, 900 MG IV ON C1D2, 1000 MG IV ON C1D8 + C1D15, C2?6D?TOTAL DOSE ADMINISTERED THIS
     Route: 042
     Dates: start: 20201022, end: 20210407
  2. IBRUTINIB [Suspect]
     Active Substance: IBRUTINIB
     Indication: CHRONIC LYMPHOCYTIC LEUKAEMIA
     Dosage: 420 MG ORAL ONCE PER DAY  FOR 15 CYCLES, LAST ADMINISTERED DATE 07/APR/2021
     Route: 048
     Dates: start: 20201022, end: 20210407
  3. VENETOCLAX. [Suspect]
     Active Substance: VENETOCLAX
     Indication: CHRONIC LYMPHOCYTIC LEUKAEMIA
     Dosage: 20 MG PO QD DAYS 1?7 CYCLE 3, 50 MG PO QD DAYS 8?14, CYCLE 3, 100 MG PO QD DAYS 15?21, CYCLE 3, 200
     Route: 048
     Dates: start: 20210106, end: 20210407
  4. METOPROLOL. [Concomitant]
     Active Substance: METOPROLOL
     Indication: ATRIAL FIBRILLATION

REACTIONS (1)
  - Atrial fibrillation [Recovered/Resolved]

NARRATIVE: CASE EVENT DATE: 20210407
